FAERS Safety Report 6521132-8 (Version None)
Quarter: 2009Q4

REPORT INFORMATION
  Report Type: 
  Country: None (occurrence: None)
  Receive Date: 20091222
  Receipt Date: 20091217
  Transmission Date: 20100525
  Serious: Yes (Death)
  Sender: FDA-Public Use
  Company Number: 2009US003983

PATIENT
  Age: 51 Year
  Sex: Male

DRUGS (6)
  1. PROGRAF [Suspect]
     Indication: RENAL TRANSPLANT
     Dosage: 2 MG, BID
  2. ASPIRIN [Concomitant]
  3. PREDNISONE [Concomitant]
  4. BACTRIM [Concomitant]
  5. CELLCEPT [Concomitant]
  6. TRAZODONE HCL [Concomitant]

REACTIONS (1)
  - DEATH [None]
